FAERS Safety Report 8625131-1 (Version None)
Quarter: 2012Q3

REPORT INFORMATION
  Report Type: 
  Country: None (occurrence: None)
  Receive Date: 20120827
  Receipt Date: 20120816
  Transmission Date: 20120928
  Serious: Yes (Hospitalization)
  Sender: FDA-Public Use
  Company Number: FR-GLAXOSMITHKLINE-B0823141A

PATIENT
  Sex: Male

DRUGS (5)
  1. ZOFRAN [Suspect]
     Indication: PREMEDICATION
     Dosage: 8MG SINGLE DOSE
     Route: 042
     Dates: start: 20120620, end: 20120620
  2. CARBOPLATIN [Suspect]
     Indication: LUNG NEOPLASM MALIGNANT
     Dosage: 415MG CYCLIC
     Route: 042
     Dates: start: 20120620, end: 20120620
  3. VINORELBINE [Concomitant]
     Indication: LUNG NEOPLASM MALIGNANT
     Route: 042
     Dates: start: 20120509
  4. METHYLPREDNISOLONE [Suspect]
     Indication: PREMEDICATION
     Dosage: 40MG SINGLE DOSE
     Route: 042
     Dates: start: 20120620, end: 20120620
  5. PLITICAN [Suspect]
     Indication: PREMEDICATION
     Dosage: 150MG SINGLE DOSE
     Route: 042
     Dates: start: 20120620, end: 20120620

REACTIONS (3)
  - FORMICATION [None]
  - MALAISE [None]
  - CYANOSIS [None]
